FAERS Safety Report 4593458-9 (Version None)
Quarter: 2005Q1

REPORT INFORMATION
  Report Type: 
  Country: None (occurrence: None)
  Receive Date: 20050224
  Receipt Date: 20040714
  Transmission Date: 20050727
  Serious: No
  Sender: FDA-Public Use
  Company Number: US-BRISTOL-MYERS SQUIBB COMPANY-12643847

PATIENT
  Age: 55 Year
  Sex: Female
  Weight: 59 kg

DRUGS (3)
  1. EXCEDRIN (MIGRAINE) [Suspect]
     Indication: SINUS HEADACHE
     Dosage: SOMETIMES TAKES 4 TABLETS
     Route: 048
  2. ALLERGY MEDICATIONS [Concomitant]
  3. VITAMINS [Concomitant]

REACTIONS (1)
  - ABDOMINAL PAIN UPPER [None]
